FAERS Safety Report 17567517 (Version 1)
Quarter: 2020Q1

REPORT INFORMATION
  Report Type: Report from Study
  Country: US (occurrence: US)
  Receive Date: 20200320
  Receipt Date: 20200320
  Transmission Date: 20200409
  Serious: Yes (Hospitalization)
  Sender: FDA-Public Use
  Company Number: US-ROCHE-2570105

PATIENT
  Sex: Male

DRUGS (13)
  1. DEXAMETHASONE. [Concomitant]
     Active Substance: DEXAMETHASONE
     Route: 065
  2. DEXTROSE. [Concomitant]
     Active Substance: DEXTROSE
  3. DIPHENHYDRAMINE. [Concomitant]
     Active Substance: DIPHENHYDRAMINE
     Route: 065
  4. HYDROMORPHONE [Concomitant]
     Active Substance: HYDROMORPHONE
     Route: 065
  5. AMLODIPINE [Concomitant]
     Active Substance: AMLODIPINE BESYLATE
     Route: 065
  6. ATOVAQUONE. [Concomitant]
     Active Substance: ATOVAQUONE
     Route: 048
  7. DILTIAZEM. [Concomitant]
     Active Substance: DILTIAZEM
     Route: 065
  8. DOCUSATE [Concomitant]
     Active Substance: DOCUSATE
     Route: 065
  9. HALOPERIDOL LACTATE. [Concomitant]
     Active Substance: HALOPERIDOL LACTATE
     Route: 065
  10. INSULIN LISPRO [Concomitant]
     Active Substance: INSULIN LISPRO
  11. GLUCOSE [Concomitant]
     Active Substance: DEXTROSE
  12. VALCYTE [Suspect]
     Active Substance: VALGANCICLOVIR HYDROCHLORIDE
     Indication: CYTOMEGALOVIRUS INFECTION
     Dosage: PER RX PAD PRESCRIPTION
     Route: 048
     Dates: start: 20200304
  13. AMIODARONE [Concomitant]
     Active Substance: AMIODARONE
     Route: 065

REACTIONS (21)
  - Nausea [Unknown]
  - Pancytopenia [Unknown]
  - Hypoxia [Unknown]
  - Clostridium difficile colitis [Unknown]
  - Pyrexia [Unknown]
  - Lymphoma transformation [Unknown]
  - Hyperglycaemia [Unknown]
  - Blood electrolytes abnormal [Unknown]
  - Acute respiratory failure [Unknown]
  - Encephalopathy [Unknown]
  - Hypothermia [Unknown]
  - Liver function test increased [Unknown]
  - Hypogammaglobulinaemia [Unknown]
  - Ventricular tachycardia [Unknown]
  - Seasonal allergy [Unknown]
  - Malnutrition [Unknown]
  - Physical deconditioning [Unknown]
  - Fall [Unknown]
  - Insomnia [Unknown]
  - B-cell lymphoma [Unknown]
  - Hyperlipidaemia [Unknown]
